FAERS Safety Report 7469131-6 (Version None)
Quarter: 2011Q2

REPORT INFORMATION
  Report Type: 
  Country: None (occurrence: None)
  Receive Date: 20110510
  Receipt Date: 20110426
  Transmission Date: 20111010
  Serious: Yes (Death, Other)
  Sender: FDA-Public Use
  Company Number: CA-ELI_LILLY_AND_COMPANY-CA201104007444

PATIENT
  Age: 81 Year
  Sex: Female

DRUGS (2)
  1. ANTIPSYCHOTICS [Concomitant]
  2. OLANZAPINE [Suspect]
     Indication: PATIENT RESTRAINT
     Dosage: UNK, UNKNOWN
     Route: 065

REACTIONS (5)
  - FALL [None]
  - OFF LABEL USE [None]
  - DEATH [None]
  - CEREBROVASCULAR ACCIDENT [None]
  - GENERAL PHYSICAL HEALTH DETERIORATION [None]
